FAERS Safety Report 4417425-0 (Version None)
Quarter: 2004Q3

REPORT INFORMATION
  Report Type: 
  Country: None (occurrence: None)
  Receive Date: 20040803
  Receipt Date: 20040721
  Transmission Date: 20050211
  Serious: Yes (Hospitalization, Other)
  Sender: FDA-Public Use
  Company Number: 2004049671

PATIENT
  Sex: Female
  Weight: 48.0813 kg

DRUGS (3)
  1. NEURONTIN [Suspect]
     Indication: NEUROPATHY PERIPHERAL
     Dosage: 100 MG (100 MG), ORAL
     Route: 048
  2. PREDNISONE [Suspect]
     Indication: RHEUMATOID ARTHRITIS
  3. OXYBUTYNIN (OXYBUTYNIN) [Concomitant]

REACTIONS (12)
  - CLOSTRIDIUM COLITIS [None]
  - DEHYDRATION [None]
  - DIABETES MELLITUS [None]
  - DRUG INEFFECTIVE [None]
  - HAEMATOMA [None]
  - HEPATIC ENZYME INCREASED [None]
  - IMPAIRED HEALING [None]
  - NEUROPATHY [None]
  - PAIN IN EXTREMITY [None]
  - SKIN ATROPHY [None]
  - WOUND [None]
  - WOUND COMPLICATION [None]
